FAERS Safety Report 10910995 (Version 1)
Quarter: 2015Q1

REPORT INFORMATION
  Report Type: Spontaneous
  Country: US (occurrence: US)
  Receive Date: 20150312
  Receipt Date: 20150312
  Transmission Date: 20150721
  Serious: No
  Sender: FDA-Public Use
  Company Number: US-GLAXOSMITHKLINE-US2015023555

PATIENT
  Age: 64 Year
  Sex: Male

DRUGS (2)
  1. VENTOLIN [Suspect]
     Active Substance: ALBUTEROL SULFATE
     Indication: ASTHMA
     Dosage: 2 PUFF(S), SINGLE
     Route: 055
     Dates: start: 20150219
  2. ASPIRIN (BABY) [Concomitant]

REACTIONS (4)
  - Dyspnoea [Recovered/Resolved]
  - Drug ineffective [Unknown]
  - Expired product administered [Unknown]
  - Cough [Recovered/Resolved]

NARRATIVE: CASE EVENT DATE: 20150219
